FAERS Safety Report 18922866 (Version 1)
Quarter: 2021Q1

REPORT INFORMATION
  Report Type: Spontaneous
  Country: US (occurrence: US)
  Receive Date: 20210222
  Receipt Date: 20210222
  Transmission Date: 20210420
  Serious: No
  Sender: FDA-Public Use
  Company Number: US-CURIUM-1998000093

PATIENT
  Sex: Female

DRUGS (1)
  1. ULTRATAG RBC [Suspect]
     Active Substance: TECHNETIUM TC-99M RED BLOOD CELLS
     Indication: MULTIPLE GATED ACQUISITION SCAN
     Route: 042
     Dates: start: 19980210

REACTIONS (4)
  - Erythema [Recovered/Resolved]
  - Pruritus [Recovered/Resolved]
  - Dyspnoea [Recovered/Resolved]
  - Urticaria [Recovered/Resolved]

NARRATIVE: CASE EVENT DATE: 19980210
